FAERS Safety Report 23929530 (Version 1)
Quarter: 2024Q2

REPORT INFORMATION
  Report Type: Spontaneous
  Country: US (occurrence: US)
  Receive Date: 20240601
  Receipt Date: 20240601
  Transmission Date: 20240716
  Serious: No
  Sender: FDA-Public Use
  Company Number: US-RADIUS HEALTH INC.-2024US001359

PATIENT
  Sex: Female

DRUGS (2)
  1. TYMLOS [Suspect]
     Active Substance: ABALOPARATIDE
     Indication: Senile osteoporosis
     Dosage: 80 MCG, QD
     Route: 058
     Dates: start: 20231214
  2. TYMLOS [Suspect]
     Active Substance: ABALOPARATIDE
     Dosage: 80 MCG, THREE TIMES A WEEK
     Route: 058
     Dates: start: 202403

REACTIONS (4)
  - Myalgia [Recovering/Resolving]
  - Arthralgia [Recovering/Resolving]
  - Intentional product misuse [Unknown]
  - Product quality issue [Unknown]
